FAERS Safety Report 9165861 (Version 1)
Quarter: 2013Q1

REPORT INFORMATION
  Report Type: Spontaneous
  Country: NO (occurrence: NO)
  Receive Date: 20130315
  Receipt Date: 20130315
  Transmission Date: 20140127
  Serious: Yes (Hospitalization, Other)
  Sender: FDA-Public Use
  Company Number: NO-BAYER-2012-131054

PATIENT
  Age: 29 Year
  Sex: Female

DRUGS (1)
  1. MIRENA [Suspect]
     Indication: CONTRACEPTION
     Dosage: 20 MCG/24HR, CONT
     Route: 015
     Dates: start: 20121001, end: 20130104

REACTIONS (5)
  - Pregnancy with contraceptive device [Recovered/Resolved]
  - Medication error [None]
  - Amniotic cavity infection [None]
  - Abortion spontaneous [None]
  - Device expulsion [None]
